FAERS Safety Report 9162328 (Version 1)
Quarter: 2013Q1

REPORT INFORMATION
  Report Type: Spontaneous
  Country: US (occurrence: None)
  Receive Date: 20130225
  Receipt Date: 20130225
  Transmission Date: 20140127
  Serious: Yes (Hospitalization)
  Sender: FDA-Public Use
  Company Number: DEP_00860_2013

PATIENT
  Age: 53 Year
  Sex: Female

DRUGS (9)
  1. GABAPENTIN [Suspect]
     Indication: PRODUCT USED FOR UNKNOWN INDICATION
     Dosage: 300 MG IN THE MORNING AND AT NOON WITH 100 MG AT NIGHT ORAL), (700 MG, 300 MG IN THE MORNING AND AT NOON WITH 100 MG AT NIGHT ORAL)
  2. SPIRONOLACTONE [Concomitant]
  3. NADOLOL [Concomitant]
  4. LACTULOSE [Concomitant]
  5. URSODIOL [Concomitant]
  6. FERROUS SULFATE [Concomitant]
  7. OMEPRAZOLE [Concomitant]
  8. CITALOPRAM HYDROBROMIDE [Concomitant]
  9. TRAZODONE HYDROCHLORIDE [Concomitant]

REACTIONS (9)
  - Drug withdrawal syndrome [None]
  - No therapeutic response [None]
  - Haematemesis [None]
  - Melaena [None]
  - Abdominal pain [None]
  - Blood pressure decreased [None]
  - Ammonia increased [None]
  - Hepatic encephalopathy [None]
  - Alcohol withdrawal syndrome [None]
